FAERS Safety Report 9953254 (Version 1)
Quarter: 2014Q1

REPORT INFORMATION
  Report Type: Spontaneous
  Country: US (occurrence: US)
  Receive Date: 20140304
  Receipt Date: 20140304
  Transmission Date: 20141002
  Serious: No
  Sender: FDA-Public Use
  Company Number: US-AMGEN-USASP2013070840

PATIENT
  Age: 62 Year
  Sex: Female
  Weight: 48.53 kg

DRUGS (8)
  1. ENBREL [Suspect]
     Indication: PRODUCT USED FOR UNKNOWN INDICATION
     Dosage: 50 MG, QWK
     Route: 065
  2. PROPRANOLOL [Concomitant]
     Dosage: 10 MG, UNK
     Route: 048
  3. ESTRADIOL [Concomitant]
     Dosage: 0.025 MG, UNK
     Route: 048
  4. LEVOTHYROXIN [Concomitant]
     Dosage: 25 MUG, UNK
     Route: 048
  5. AMITRIPTYLIN [Concomitant]
     Dosage: 25 MG, UNK
     Route: 048
  6. ALPRAZOLAM [Concomitant]
     Dosage: 0.25 MG, UNK
     Route: 048
  7. IMITREX                            /01044801/ [Concomitant]
     Dosage: 25 MG, UNK
     Route: 048
  8. PERCOCET                           /00446701/ [Concomitant]
     Dosage: UNK. 2.5TO 325
     Route: 048

REACTIONS (4)
  - Miliaria [Unknown]
  - Injection site swelling [Unknown]
  - Injection site reaction [Unknown]
  - Injection site erythema [Unknown]
